FAERS Safety Report 9187024 (Version 4)
Quarter: 2013Q2

REPORT INFORMATION
  Report Type: Spontaneous
  Country: DE (occurrence: DE)
  Receive Date: 20130325
  Receipt Date: 20130509
  Transmission Date: 20140414
  Serious: Yes (Hospitalization, Other)
  Sender: FDA-Public Use
  Company Number: DE-JNJFOC-20130312092

PATIENT
  Age: 84 Year
  Sex: Female
  Weight: 78 kg

DRUGS (2)
  1. XARELTO [Suspect]
     Indication: EMBOLISM VENOUS
     Route: 048
     Dates: start: 20120327
  2. XARELTO [Suspect]
     Indication: VENOUS THROMBOSIS LIMB
     Route: 048
     Dates: start: 20120327

REACTIONS (3)
  - Haemarthrosis [Unknown]
  - Thrombosis [Recovered/Resolved]
  - Drug ineffective [Unknown]
